FAERS Safety Report 13733701 (Version 1)
Quarter: 2017Q3

REPORT INFORMATION
  Report Type: Spontaneous
  Country: JP (occurrence: JP)
  Receive Date: 20170707
  Receipt Date: 20170707
  Transmission Date: 20171127
  Serious: Yes (Hospitalization, Other)
  Sender: FDA-Public Use
  Company Number: JP-FERRINGPH-2017FE03146

PATIENT

DRUGS (2)
  1. DESMOPRESSIN [Suspect]
     Active Substance: DESMOPRESSIN
     Indication: HYPOPITUITARISM
     Route: 045
  2. MINIRINMELT [Suspect]
     Active Substance: DESMOPRESSIN ACETATE
     Indication: HYPOPITUITARISM
     Route: 048

REACTIONS (1)
  - Craniopharyngioma [Unknown]
